FAERS Safety Report 14353696 (Version 4)
Quarter: 2024Q2

REPORT INFORMATION
  Report Type: Spontaneous
  Country: CZ (occurrence: CZ)
  Receive Date: 20180105
  Receipt Date: 20240409
  Transmission Date: 20240716
  Serious: Yes (Other)
  Sender: FDA-Public Use
  Company Number: CZ-ACCORD-061979

PATIENT
  Age: 22 Year
  Sex: Male

DRUGS (7)
  1. ETOPOSIDE [Suspect]
     Active Substance: ETOPOSIDE
     Indication: Blastic plasmacytoid dendritic cell neoplasia
     Route: 037
     Dates: start: 201506
  2. METHOTREXATE [Suspect]
     Active Substance: METHOTREXATE
     Indication: Blastic plasmacytoid dendritic cell neoplasia
     Route: 037
     Dates: start: 201504
  3. CYTARABINE [Suspect]
     Active Substance: CYTARABINE
     Indication: Blastic plasmacytoid dendritic cell neoplasia
     Dosage: 3 PROPHYLACTIC INTRATHECAL APPLICATION OF CHEMOTHERAPY
     Route: 037
     Dates: start: 201504
  4. CYCLOPHOSPHAMIDE [Suspect]
     Active Substance: CYCLOPHOSPHAMIDE
     Indication: Blastic plasmacytoid dendritic cell neoplasia
     Route: 037
     Dates: start: 201504
  5. MERCAPTOPURINE [Suspect]
     Active Substance: MERCAPTOPURINE
     Indication: Blastic plasmacytoid dendritic cell neoplasia
     Route: 037
     Dates: start: 201504
  6. DEXAMETHASONE [Suspect]
     Active Substance: DEXAMETHASONE
     Indication: Blastic plasmacytoid dendritic cell neoplasia
     Dosage: 3 PROPHYLACTIC INTRATHECAL APPLICATIONS OF CHEMOTHERAPY
     Route: 037
     Dates: start: 201504
  7. VINDESINE SULFATE [Suspect]
     Active Substance: VINDESINE SULFATE
     Indication: Blastic plasmacytoid dendritic cell neoplasia
     Route: 037
     Dates: start: 201506

REACTIONS (3)
  - Drug-induced liver injury [Unknown]
  - Stomatitis [Unknown]
  - Odynophagia [Unknown]

NARRATIVE: CASE EVENT DATE: 20150401
